FAERS Safety Report 5816629-X (Version None)
Quarter: 2008Q3

REPORT INFORMATION
  Report Type: 
  Country: None (occurrence: None)
  Receive Date: 20080721
  Receipt Date: 20080714
  Transmission Date: 20090109
  Serious: Yes (Hospitalization)
  Sender: FDA-Public Use
  Company Number: US-BRISTOL-MYERS SQUIBB COMPANY-14261754

PATIENT
  Age: 64 Year
  Sex: Male
  Weight: 69 kg

DRUGS (2)
  1. CISPLATIN [Suspect]
     Indication: HEAD AND NECK CANCER
     Dosage: 1ST COURSE:10JUN08 COURSE ASSOCIATED WITH REPORT:07JUL08. TOTAL COURSES:15 DAY 22 DOSE HELD
     Route: 042
     Dates: start: 20080617, end: 20080617
  2. RADIATION THERAPY [Suspect]
     Indication: HEAD AND NECK CANCER

REACTIONS (3)
  - DEHYDRATION [None]
  - NEUTROPENIA [None]
  - STOMATITIS [None]
